FAERS Safety Report 5891861-8 (Version None)
Quarter: 2008Q3

REPORT INFORMATION
  Report Type: 
  Country: None (occurrence: None)
  Receive Date: 20080922
  Receipt Date: 20080910
  Transmission Date: 20090109
  Serious: Yes (Hospitalization)
  Sender: FDA-Public Use
  Company Number: DE-PFIZER INC-2008076502

PATIENT
  Sex: Female

DRUGS (4)
  1. DOXORUBICIN HYDROCHLORIDE POWDER, STERILE [Suspect]
     Route: 042
     Dates: start: 20080612
  2. TAXOTERE [Suspect]
     Route: 042
     Dates: start: 20080612
  3. ENDOXAN [Suspect]
     Route: 042
     Dates: start: 20080612
  4. ARANESP [Concomitant]
     Route: 058
     Dates: start: 20080704

REACTIONS (2)
  - INTERSTITIAL LUNG DISEASE [None]
  - PYREXIA [None]
